FAERS Safety Report 5854525-2 (Version None)
Quarter: 2008Q3

REPORT INFORMATION
  Report Type: 
  Country: None (occurrence: None)
  Receive Date: 20080822
  Receipt Date: 20070910
  Transmission Date: 20090109
  Serious: No
  Sender: FDA-Public Use
  Company Number: US-ABBOTT-07P-163-0416484-00

PATIENT
  Sex: Female
  Weight: 54.48 kg

DRUGS (3)
  1. SYNTHROID [Suspect]
     Indication: DRUG USE FOR UNKNOWN INDICATION
     Route: 048
     Dates: start: 20010101
  2. SYNTHROID [Suspect]
     Route: 048
     Dates: start: 19860101, end: 20010101
  3. SIMVASTATIN [Concomitant]
     Indication: DRUG USE FOR UNKNOWN INDICATION
     Route: 048

REACTIONS (4)
  - HEADACHE [None]
  - MALAISE [None]
  - PALPITATIONS [None]
  - WEIGHT INCREASED [None]
